FAERS Safety Report 5766886-3 (Version None)
Quarter: 2008Q2

REPORT INFORMATION
  Report Type: 
  Country: None (occurrence: None)
  Receive Date: 20080612
  Receipt Date: 20080604
  Transmission Date: 20081010
  Serious: Yes (Hospitalization, Other)
  Sender: FDA-Public Use
  Company Number: US-BAYER-200812269BCC

PATIENT
  Age: 93 Year
  Sex: Female
  Weight: 64 kg

DRUGS (5)
  1. ASPIRIN [Suspect]
     Indication: ISCHAEMIC HEART DISEASE PROPHYLAXIS
     Route: 048
  2. BAYER BACK AND BODY [Suspect]
     Indication: ISCHAEMIC HEART DISEASE PROPHYLAXIS
  3. ATENOLOL [Concomitant]
  4. ICAPS VITAMINS [Concomitant]
  5. MOVE FREE [Concomitant]

REACTIONS (1)
  - ATRIAL FIBRILLATION [None]
